FAERS Safety Report 6594789-3 (Version None)
Quarter: 2010Q1

REPORT INFORMATION
  Report Type: 
  Country: None (occurrence: None)
  Receive Date: 20100222
  Receipt Date: 20100115
  Transmission Date: 20100710
  Serious: Yes (Other)
  Sender: FDA-Public Use
  Company Number: PHHY2010US02479

PATIENT
  Sex: Female

DRUGS (6)
  1. TEKTURNA [Suspect]
     Indication: HYPERTENSION
     Dosage: 150 MG ONCE DAILY
     Route: 048
     Dates: start: 20080725, end: 20091119
  2. ADVAIR DISKUS 100/50 [Concomitant]
     Indication: ASTHMA
     Dosage: 1 PUFF BID
  3. THEOPHYLLINE [Concomitant]
     Indication: ASTHMA
     Dosage: 300 MG, QD
     Route: 048
  4. SYNTHROID [Concomitant]
     Indication: HYPOTHYROIDISM
     Dosage: 100 MG, QD
     Route: 048
  5. GEMFIBROZIL [Concomitant]
     Indication: DYSLIPIDAEMIA
     Dosage: 600 MG, BID
     Route: 048
  6. VITAMIN B-12 [Concomitant]

REACTIONS (8)
  - BIFASCICULAR BLOCK [None]
  - CHEST DISCOMFORT [None]
  - DIZZINESS [None]
  - DYSPNOEA [None]
  - FALL [None]
  - FATIGUE [None]
  - GAIT DISTURBANCE [None]
  - SYNCOPE [None]
